FAERS Safety Report 8824814 (Version 5)
Quarter: 2013Q1

REPORT INFORMATION
  Report Type: Spontaneous
  Country: NO (occurrence: NO)
  Receive Date: 20121004
  Receipt Date: 20130117
  Transmission Date: 20140127
  Serious: Yes (Other)
  Sender: FDA-Public Use
  Company Number: NO-TEVA-360110ISR

PATIENT
  Age: 68 Year
  Sex: Female

DRUGS (10)
  1. LANSOPRAZOLE [Suspect]
     Indication: GASTROOESOPHAGEAL REFLUX DISEASE
     Dosage: 30 MILLIGRAM DAILY;
  2. PANTOPRAZOLE [Suspect]
     Indication: GASTROOESOPHAGEAL REFLUX DISEASE
     Dosage: 40 MILLIGRAM DAILY;
     Route: 065
  3. AMLODIPINE [Concomitant]
     Dosage: 10 MILLIGRAM DAILY;
     Route: 065
  4. LEVOTHYROXINE [Concomitant]
     Dosage: 50 MICROGRAM DAILY;
  5. METFORMIN [Concomitant]
     Dosage: 500 MILLIGRAM DAILY;
     Route: 065
  6. FLUNITRAZEPAM [Concomitant]
     Dosage: 1 MILLIGRAM DAILY;
     Route: 065
  7. GLIBENCLAMID [Concomitant]
     Dosage: 1.75 MILLIGRAM DAILY;
  8. DIAZEPAM [Concomitant]
     Dosage: 5 MILLIGRAM DAILY;
  9. PARACETAMOL [Concomitant]
     Dosage: 500-1000 MG - DAILY
     Route: 065
  10. METOCLOPRAMIDE [Concomitant]
     Dosage: 10-30 MG, DAILY
     Route: 065

REACTIONS (5)
  - Carcinoid tumour of the stomach [Recovered/Resolved]
  - Neuroendocrine tumour [Recovered/Resolved]
  - Hypergastrinaemia [Unknown]
  - Enterochromaffin cell hyperplasia [Recovered/Resolved]
  - Dyspepsia [Unknown]
